FAERS Safety Report 23426952 (Version 1)
Quarter: 2024Q1

REPORT INFORMATION
  Report Type: Spontaneous
  Country: FR (occurrence: FR)
  Receive Date: 20240122
  Receipt Date: 20240122
  Transmission Date: 20240409
  Serious: Yes (Hospitalization)
  Sender: FDA-Public Use
  Company Number: None

PATIENT
  Age: 75 Year
  Sex: Male

DRUGS (17)
  1. QUETIAPINE FUMARATE [Suspect]
     Active Substance: QUETIAPINE FUMARATE
     Indication: Schizophrenia
     Dosage: AT 16H
     Dates: end: 20231215
  2. TIAPRIDE HYDROCHLORIDE [Suspect]
     Active Substance: TIAPRIDE HYDROCHLORIDE
     Indication: Schizophrenia
     Dosage: THE EVENING, 100 MG, SCORED TABLET
     Dates: end: 20231216
  3. LOXAPINE [Suspect]
     Active Substance: LOXAPINE
     Indication: Schizophrenia
     Dosage: 0.5-0.5-0.5, 50 MG, FILM-COATED TABLET
     Dates: end: 20231215
  4. TRIMEPRAZINE [Suspect]
     Active Substance: TRIMEPRAZINE
     Indication: Schizophrenia
     Dosage: 0-0-4  5 MG, SCORED FILM-COATED TABLET
     Dates: end: 20231216
  5. OXAZEPAM [Concomitant]
     Active Substance: OXAZEPAM
     Dosage: 1-0-1 10 MG, TABLET
  6. TRIHEXYPHENIDYL HYDROCHLORIDE [Concomitant]
     Active Substance: TRIHEXYPHENIDYL HYDROCHLORIDE
     Dosage: 1-0-0 2 MG, PROLONGED RELEASE CAPSULE
  7. CHOLECALCIFEROL [Concomitant]
     Active Substance: CHOLECALCIFEROL
     Dosage: 1-0-0,  100,000 IU, ORAL SOLUTION IN AMPOULE
  8. DORZOLAMIDE HYDROCHLORIDE\TIMOLOL MALEATE [Concomitant]
     Active Substance: DORZOLAMIDE HYDROCHLORIDE\TIMOLOL MALEATE
     Dosage: 1-0-1, 20 MG/ML AND 5 MG/ML, EYE DROPS SOLUTION
  9. LATANOPROST [Concomitant]
     Active Substance: LATANOPROST
     Dosage: 0-0-1, 50 MICROGRAMS/ML, EYE DROPS SOLUTION IN SINGLE-DOSE CONTAINER
  10. MIRTAZAPINE [Concomitant]
     Active Substance: MIRTAZAPINE
     Dosage: 0-0-1
  11. FERROUS FUMARATE [Concomitant]
     Active Substance: FERROUS FUMARATE
     Dosage: 1-1-1, 66 MG, FILM-COATED TABLET
  12. MOVICOL [Concomitant]
     Active Substance: POLYETHYLENE GLYCOL 3350\POTASSIUM CHLORIDE\SODIUM BICARBONATE\SODIUM CHLORIDE
     Dosage: 1-0-0
  13. EUPANTOL [Concomitant]
     Active Substance: PANTOPRAZOLE SODIUM
     Dosage: 0-0-1 40 MG, GASTRO-RESISTANT TABLET
  14. KARDEGIC [Concomitant]
     Active Substance: ASPIRIN DL-LYSINE
     Dosage: 0-0-1  75 MG, POWDER FOR ORAL SOLUTION IN SACHET-DOSE
  15. LEVETIRACETAM [Concomitant]
     Active Substance: LEVETIRACETAM
     Dosage: 1-0-1
  16. LOXAPINE [Suspect]
     Active Substance: LOXAPINE
     Indication: Schizophrenia
     Dosage: 0.5-0.5-0.5, 50 MG, FILM-COATED TABLET
     Dates: start: 20231215, end: 20231216
  17. QUETIAPINE FUMARATE [Suspect]
     Active Substance: QUETIAPINE FUMARATE
     Indication: Schizophrenia
     Dosage: AT 16H
     Dates: start: 20231215, end: 20231216

REACTIONS (1)
  - Schizophrenia [Recovered/Resolved]

NARRATIVE: CASE EVENT DATE: 20231215
